FAERS Safety Report 12796988 (Version 4)
Quarter: 2016Q4

REPORT INFORMATION
  Report Type: Report from Study
  Country: US (occurrence: US)
  Receive Date: 20160929
  Receipt Date: 20161121
  Transmission Date: 20170207
  Serious: Yes (Hospitalization)
  Sender: FDA-Public Use
  Company Number: US-ACTELION-A-NJ2016-142865

PATIENT
  Age: 59 Year
  Sex: Female

DRUGS (4)
  1. COUMADIN [Concomitant]
     Active Substance: WARFARIN SODIUM
  2. TRACLEER [Suspect]
     Active Substance: BOSENTAN
     Indication: PULMONARY ARTERIAL HYPERTENSION
     Dosage: 125 MG, BID
     Route: 048
     Dates: start: 20150610
  3. NORVASC [Concomitant]
     Active Substance: AMLODIPINE BESYLATE
  4. VELETRI [Suspect]
     Active Substance: EPOPROSTENOL
     Indication: PULMONARY ARTERIAL HYPERTENSION
     Dosage: 60 NG/KG, PER MIN
     Route: 042
     Dates: start: 20111205

REACTIONS (5)
  - Skin infection [Unknown]
  - Malaise [Unknown]
  - Vulvectomy [Unknown]
  - Dyspnoea [Unknown]
  - Malignant melanoma [Unknown]

NARRATIVE: CASE EVENT DATE: 201608
